FAERS Safety Report 9744347 (Version 1)
Quarter: 2013Q4

REPORT INFORMATION
  Report Type: Spontaneous
  Country: CA (occurrence: CA)
  Receive Date: 20131210
  Receipt Date: 20131210
  Transmission Date: 20140711
  Serious: Yes (Other)
  Sender: FDA-Public Use
  Company Number: CA-009507513-1312CAN003763

PATIENT
  Age: 63 Year
  Sex: Female

DRUGS (1)
  1. FOSAVANCE [Suspect]
     Indication: OSTEOPOROSIS
     Route: 048

REACTIONS (2)
  - Hip fracture [Recovering/Resolving]
  - Fall [Recovering/Resolving]
